FAERS Safety Report 14980186 (Version 1)
Quarter: 2018Q2

REPORT INFORMATION
  Report Type: Spontaneous
  Country: RO (occurrence: RO)
  Receive Date: 20180606
  Receipt Date: 20180606
  Transmission Date: 20180711
  Serious: Yes (Disabling, Other)
  Sender: FDA-Public Use
  Company Number: RO-MYLANLABS-2018M1037348

PATIENT
  Age: 48 Year
  Sex: Female

DRUGS (1)
  1. PENTOXIFYLLINE. [Suspect]
     Active Substance: PENTOXIFYLLINE
     Indication: PERIPHERAL ISCHAEMIA
     Dosage: UNK
     Route: 042

REACTIONS (2)
  - Gangrene [Recovering/Resolving]
  - Drug ineffective [Unknown]
